FAERS Safety Report 6982713-0 (Version None)
Quarter: 2010Q3

REPORT INFORMATION
  Report Type: 
  Country: None (occurrence: None)
  Receive Date: 20100914
  Receipt Date: 20100325
  Transmission Date: 20110219
  Serious: Yes (Other)
  Sender: FDA-Public Use
  Company Number: US-PFIZER INC-2010038579

PATIENT
  Sex: Female
  Weight: 43.084 kg

DRUGS (6)
  1. LYRICA [Suspect]
     Indication: COMPLEX REGIONAL PAIN SYNDROME
     Dosage: 150 MG, 2X/DAY
     Route: 048
     Dates: start: 20070101
  2. LYRICA [Suspect]
     Indication: MYOCLONIC EPILEPSY
  3. LYRICA [Suspect]
     Indication: FIBROMYALGIA
  4. KLONOPIN [Concomitant]
     Indication: MYOCLONIC EPILEPSY
     Dosage: 1 MG, 4X/DAY
     Route: 048
  5. XYZAL [Concomitant]
     Indication: SINUSITIS
     Dosage: UNK
  6. XYZAL [Concomitant]
     Indication: HYPERSENSITIVITY

REACTIONS (3)
  - AGEUSIA [None]
  - HYPERSENSITIVITY [None]
  - WEIGHT INCREASED [None]
